FAERS Safety Report 7831422-4 (Version None)
Quarter: 2011Q4

REPORT INFORMATION
  Report Type: 
  Country: None (occurrence: None)
  Receive Date: 20111021
  Receipt Date: 20111014
  Transmission Date: 20120403
  Serious: Yes (Death)
  Sender: FDA-Public Use
  Company Number: JP-ASTRAZENECA-2011SE59825

PATIENT
  Age: 80 Year
  Sex: Male

DRUGS (7)
  1. LOBU [Concomitant]
     Route: 048
  2. SEROQUEL [Suspect]
     Route: 048
     Dates: start: 20110926
  3. DEPAKENE [Concomitant]
     Route: 048
  4. BROTIZOLAM [Concomitant]
     Route: 048
  5. SEROQUEL [Suspect]
     Route: 048
     Dates: end: 20110925
  6. ROHYPNOL [Concomitant]
     Route: 048
  7. OVULANZE TAIYO [Concomitant]
     Route: 048

REACTIONS (1)
  - INTERSTITIAL LUNG DISEASE [None]
